FAERS Safety Report 10950575 (Version 1)
Quarter: 2015Q1

REPORT INFORMATION
  Report Type: Spontaneous
  Country: US (occurrence: US)
  Receive Date: 20150324
  Receipt Date: 20150324
  Transmission Date: 20150721
  Serious: Yes (Other)
  Sender: FDA-Public Use
  Company Number: US-GLAXOSMITHKLINE-US2015036897

PATIENT
  Age: 49 Year
  Sex: Female

DRUGS (11)
  1. IMURAN [Concomitant]
     Active Substance: AZATHIOPRINE
  2. AMBIEN [Concomitant]
     Active Substance: ZOLPIDEM TARTRATE
  3. TYLENOL [Concomitant]
     Active Substance: ACETAMINOPHEN
  4. ADDERALL XR [Concomitant]
     Active Substance: AMPHETAMINE ASPARTATE\AMPHETAMINE SULFATE\DEXTROAMPHETAMINE SACCHARATE\DEXTROAMPHETAMINE SULFATE
  5. ARIXTRA [Concomitant]
     Active Substance: FONDAPARINUX SODIUM
  6. BENLYSTA [Suspect]
     Active Substance: BELIMUMAB
     Indication: SYSTEMIC LUPUS ERYTHEMATOSUS
     Dosage: UNK, CYC
     Dates: start: 201405
  7. LISINOPRIL. [Concomitant]
     Active Substance: LISINOPRIL
  8. PLAQUENIL [Concomitant]
     Active Substance: HYDROXYCHLOROQUINE SULFATE
  9. TRAZODONE [Concomitant]
     Active Substance: TRAZODONE HYDROCHLORIDE
  10. VITAMIN D [Concomitant]
     Active Substance: CHOLECALCIFEROL
  11. OMEGA 3 [Concomitant]
     Active Substance: OMEGA-3 FATTY ACIDS

REACTIONS (8)
  - Cellulitis [Recovered/Resolved]
  - Nasopharyngitis [Recovering/Resolving]
  - Laceration [Recovered/Resolved]
  - Sinusitis [Recovering/Resolving]
  - Dysphonia [Unknown]
  - Nasal congestion [Unknown]
  - Staphylococcal infection [Recovered/Resolved]
  - Weight decreased [Unknown]

NARRATIVE: CASE EVENT DATE: 201411
